FAERS Safety Report 8125368-4 (Version None)
Quarter: 2012Q1

REPORT INFORMATION
  Report Type: 
  Country: None (occurrence: None)
  Receive Date: 20120209
  Receipt Date: 20120118
  Transmission Date: 20120608
  Serious: Yes (Other)
  Sender: FDA-Public Use
  Company Number: JP-GLAXOSMITHKLINE-B0776749A

PATIENT
  Sex: Female
  Weight: 10 kg

DRUGS (1)
  1. VALTREX [Suspect]
     Indication: HERPES SIMPLEX
     Dosage: .99G PER DAY
     Route: 048
     Dates: start: 20120110, end: 20120110

REACTIONS (3)
  - HALLUCINATION [None]
  - MOOD ALTERED [None]
  - RESTLESSNESS [None]
